FAERS Safety Report 9774963 (Version 1)
Quarter: 2013Q4

REPORT INFORMATION
  Report Type: Spontaneous
  Country: US (occurrence: US)
  Receive Date: 20131220
  Receipt Date: 20131220
  Transmission Date: 20140711
  Serious: No
  Sender: FDA-Public Use
  Company Number: US-GLAXOSMITHKLINE-A1024140A

PATIENT
  Sex: Male

DRUGS (2)
  1. AVODART [Suspect]
     Indication: ALOPECIA
     Route: 048
  2. UNKNOWN [Concomitant]

REACTIONS (3)
  - Blood testosterone increased [Unknown]
  - Alopecia [Unknown]
  - Spontaneous penile erection [Unknown]
